FAERS Safety Report 26027568 (Version 1)
Quarter: 2025Q4

REPORT INFORMATION
  Report Type: Spontaneous
  Country: US (occurrence: None)
  Receive Date: 20251110
  Receipt Date: 20251110
  Transmission Date: 20260117
  Serious: Yes (unspecified)
  Sender: FDA-CTU
  Company Number: None

PATIENT
  Age: 52 Year
  Sex: Male
  Weight: 180 kg

DRUGS (2)
  1. DEXMEDETOMIDINE [Suspect]
     Active Substance: DEXMEDETOMIDINE
     Indication: Endotracheal intubation
     Dosage: OTHER STRENGTH : 400MCG ML;?
     Route: 042
     Dates: start: 20251103, end: 20251103
  2. DEXMEDETOMIDINE [Suspect]
     Active Substance: DEXMEDETOMIDINE
     Indication: Respiratory failure

REACTIONS (3)
  - Device malfunction [None]
  - Incorrect drug administration rate [None]
  - Hypotension [None]

NARRATIVE: CASE EVENT DATE: 20251103
